FAERS Safety Report 9030876 (Version 1)
Quarter: 2013Q1

REPORT INFORMATION
  Report Type: Spontaneous
  Country: BE (occurrence: BE)
  Receive Date: 20130123
  Receipt Date: 20130123
  Transmission Date: 20140127
  Serious: Yes (Other)
  Sender: FDA-Public Use
  Company Number: BE-ROCHE-1181723

PATIENT
  Sex: Female

DRUGS (6)
  1. XOLAIR [Suspect]
     Indication: PRODUCT USED FOR UNKNOWN INDICATION
     Route: 058
     Dates: start: 2009
  2. MONTELUKAST [Concomitant]
  3. INUVAIR [Concomitant]
  4. BURINEX [Concomitant]
  5. XYZAL [Concomitant]
  6. SEROXAT [Concomitant]

REACTIONS (1)
  - VIIth nerve paralysis [Unknown]
